FAERS Safety Report 5572110-7 (Version None)
Quarter: 2007Q4

REPORT INFORMATION
  Report Type: 
  Country: None (occurrence: None)
  Receive Date: 20071221
  Receipt Date: 20071212
  Transmission Date: 20080405
  Serious: Yes (Other)
  Sender: FDA-Public Use
  Company Number: US-PFIZER INC-2007091168

PATIENT
  Sex: Female
  Weight: 90.7 kg

DRUGS (9)
  1. DETROL LA [Suspect]
     Indication: URINARY INCONTINENCE
  2. MINIPRESS [Concomitant]
  3. THYROID HORMONES [Concomitant]
  4. SEROQUEL [Concomitant]
  5. TRAZODONE HCL [Concomitant]
  6. TYLENOL (CAPLET) [Concomitant]
  7. ACETAMINOPHEN AND OXYCODONE HCL [Concomitant]
  8. INFLUENZA VACCINE [Concomitant]
  9. PNEUMOCOCCAL VACCINE [Concomitant]

REACTIONS (4)
  - CATARACT [None]
  - DRUG INEFFECTIVE [None]
  - GLAUCOMA [None]
  - POLLAKIURIA [None]
